FAERS Safety Report 7996417-9 (Version None)
Quarter: 2011Q4

REPORT INFORMATION
  Report Type: 
  Country: None (occurrence: None)
  Receive Date: 20111220
  Receipt Date: 20111205
  Transmission Date: 20120403
  Serious: Yes (Other)
  Sender: FDA-Public Use
  Company Number: PT-WATSON-2011-21841

PATIENT
  Age: 17 Year

DRUGS (1)
  1. ALBUTEROL [Suspect]
     Indication: ASTHMA

REACTIONS (1)
  - LACTIC ACIDOSIS [None]
